FAERS Safety Report 16962865 (Version 1)
Quarter: 2019Q4

REPORT INFORMATION
  Report Type: Spontaneous
  Country: US (occurrence: US)
  Receive Date: 20190906
  Receipt Date: 20190906
  Transmission Date: 20200122
  Serious: Yes (Hospitalization)
  Sender: FDA-Public Use
  Company Number: None

PATIENT
  Age: 61 Year
  Sex: Male
  Weight: 80.1 kg

DRUGS (2)
  1. NEXAVAR [Suspect]
     Active Substance: SORAFENIB
     Dates: end: 20190715
  2. EVEROLIMUS (RAD-001) [Suspect]
     Active Substance: EVEROLIMUS
     Dates: end: 20190715

REACTIONS (9)
  - Urinary retention [None]
  - Body temperature increased [None]
  - Escherichia test positive [None]
  - Scrotal swelling [None]
  - White blood cell count increased [None]
  - Urinary tract infection [None]
  - Abdominal discomfort [None]
  - Urine output decreased [None]
  - Prostatomegaly [None]

NARRATIVE: CASE EVENT DATE: 20190715
